FAERS Safety Report 9818417 (Version 1)
Quarter: 2013Q4

REPORT INFORMATION
  Report Type: Spontaneous
  Country: US (occurrence: None)
  Receive Date: 20131223
  Receipt Date: 20131223
  Transmission Date: 20140711
  Serious: No
  Sender: FDA-Public Use
  Company Number: 219308

PATIENT
  Age: 51 Year
  Sex: Female

DRUGS (1)
  1. PICATO GEL [Suspect]
     Indication: ACTINIC KERATOSIS
     Dosage: 1 IN 1 D
     Route: 061

REACTIONS (4)
  - Application site vesicles [None]
  - Erythema [None]
  - Drug administered at inappropriate site [None]
  - Skin exfoliation [None]
